FAERS Safety Report 23615063 (Version 1)
Quarter: 2024Q1

REPORT INFORMATION
  Report Type: Spontaneous
  Country: US (occurrence: US)
  Receive Date: 20240311
  Receipt Date: 20240311
  Transmission Date: 20240409
  Serious: Yes (Hospitalization)
  Sender: FDA-Public Use
  Company Number: US-AstraZeneca-2024A047796

PATIENT
  Age: 56 Year
  Sex: Female
  Weight: 127 kg

DRUGS (32)
  1. BUDESONIDE [Suspect]
     Active Substance: BUDESONIDE
     Dosage: ROA; RESPIRATORY INHALATION
     Route: 055
  2. TEZSPIRE [Suspect]
     Active Substance: TEZEPELUMAB-EKKO
     Indication: Asthma
  3. DUPIXENT [Suspect]
     Active Substance: DUPILUMAB
     Indication: Asthma
     Dosage: EVERY OTHER WEEK
     Route: 058
     Dates: start: 202106
  4. VITAMIN E [Concomitant]
     Active Substance: .ALPHA.-TOCOPHEROL
  5. OMEGA-3-ACID ETHYL ESTERS [Concomitant]
     Active Substance: OMEGA-3-ACID ETHYL ESTERS
  6. ASCORBIC ACID [Concomitant]
     Active Substance: ASCORBIC ACID
  7. CUPRIC OXIDE [Concomitant]
     Active Substance: CUPRIC OXIDE
  8. .ALPHA.-TOCOPHEROL ACETATE, DL- [Concomitant]
     Active Substance: .ALPHA.-TOCOPHEROL ACETATE, DL-
  9. ZEAXANTHIN [Concomitant]
     Active Substance: ZEAXANTHIN
  10. ZINC OXIDE [Concomitant]
     Active Substance: ZINC OXIDE
  11. VITAMIN C [Concomitant]
     Active Substance: ASCORBIC ACID
  12. SAMBUCUS NIGRA [Concomitant]
     Active Substance: HOMEOPATHICS
  13. VITAMIN D3 [Concomitant]
     Active Substance: CHOLECALCIFEROL
  14. LORAZEPAM [Concomitant]
     Active Substance: LORAZEPAM
  15. LEVOSALBUTAMOL TARTRATE [Concomitant]
  16. LEVOSALBUTAMOL TARTRATE [Concomitant]
  17. SOLU-CORTEF [Concomitant]
     Active Substance: HYDROCORTISONE SODIUM SUCCINATE
  18. FUROSEMIDE [Concomitant]
     Active Substance: FUROSEMIDE
  19. GABAPENTIN [Concomitant]
     Active Substance: GABAPENTIN
  20. PROGESTERONE [Concomitant]
     Active Substance: PROGESTERONE
  21. TRELEGY ELLIPTA [Concomitant]
     Active Substance: FLUTICASONE FUROATE\UMECLIDINIUM BROMIDE\VILANTEROL TRIFENATATE
  22. MONTELUKAST SODIUM [Concomitant]
     Active Substance: MONTELUKAST SODIUM
  23. SPIRONOLACTONE [Concomitant]
     Active Substance: SPIRONOLACTONE
  24. DILTIAZEM [Concomitant]
     Active Substance: DILTIAZEM
  25. LOSARTAN POTASSIUM [Concomitant]
     Active Substance: LOSARTAN POTASSIUM
  26. POTASSIUM CHLORIDE [Concomitant]
     Active Substance: POTASSIUM CHLORIDE
  27. PANTOPRAZOLE SODIUM [Concomitant]
     Active Substance: PANTOPRAZOLE SODIUM
  28. NUCALA [Concomitant]
     Active Substance: MEPOLIZUMAB
  29. EPINEPHRINE [Concomitant]
     Active Substance: EPINEPHRINE
  30. Estradiol tesfast [Concomitant]
  31. COENZYME Q10 [Concomitant]
     Active Substance: DIETARY SUPPLEMENT\UBIDECARENONE
  32. ZYRTEC [Concomitant]
     Active Substance: CETIRIZINE HYDROCHLORIDE

REACTIONS (2)
  - Asthma [Unknown]
  - Drug ineffective [Unknown]

NARRATIVE: CASE EVENT DATE: 20230701
